FAERS Safety Report 22800746 (Version 2)
Quarter: 2024Q4

REPORT INFORMATION
  Report Type: Spontaneous
  Country: FR (occurrence: FR)
  Receive Date: 20230808
  Receipt Date: 20241206
  Transmission Date: 20250115
  Serious: Yes (Hospitalization, Congenital Anomaly, Other)
  Sender: B BRAUN
  Company Number: FR-B.Braun Medical Inc.-2144600

PATIENT
  Age: 46 Year
  Sex: Male

DRUGS (12)
  1. CEFTRIAXONE SODIUM [Suspect]
     Active Substance: CEFTRIAXONE SODIUM
  2. BACTRIM [Suspect]
     Active Substance: SULFAMETHOXAZOLE\TRIMETHOPRIM
  3. OXAZEPAM [Suspect]
     Active Substance: OXAZEPAM
  4. VITAMIN K1 [Suspect]
     Active Substance: PHYTONADIONE
  5. OXAZEPAM [Suspect]
     Active Substance: OXAZEPAM
  6. CLINDAMYCIN [Suspect]
     Active Substance: CLINDAMYCIN
  7. PRIVIGEN [Suspect]
     Active Substance: HUMAN IMMUNOGLOBULIN G
  8. PAROXETINE HYDROCHLORIDE [Suspect]
     Active Substance: PAROXETINE HYDROCHLORIDE
  9. TRAMADOL HYDROCHLORIDE [Suspect]
     Active Substance: TRAMADOL HYDROCHLORIDE
  10. TRAMADOL HYDROCHLORIDE [Suspect]
     Active Substance: TRAMADOL HYDROCHLORIDE
  11. VANCOMYCIN [Suspect]
     Active Substance: VANCOMYCIN
  12. ACETAMINOPHEN [Suspect]
     Active Substance: ACETAMINOPHEN

REACTIONS (7)
  - Infection [Unknown]
  - Hyper IgE syndrome [Unknown]
  - Staphylococcal infection [Unknown]
  - Bacteraemia [Unknown]
  - Weight decreased [Unknown]
  - Pneumonia staphylococcal [Unknown]
  - Gynaecomastia [Unknown]
